FAERS Safety Report 21204177 (Version 6)
Quarter: 2022Q4

REPORT INFORMATION
  Report Type: Spontaneous
  Country: CA (occurrence: CA)
  Receive Date: 20220812
  Receipt Date: 20221117
  Transmission Date: 20230113
  Serious: Yes (Other)
  Sender: FDA-Public Use
  Company Number: CA-CELLTRION INC.-2022CA012497

PATIENT

DRUGS (2)
  1. INFLECTRA [Suspect]
     Active Substance: INFLIXIMAB-DYYB
     Indication: Crohn^s disease
     Dosage: 400 MG (5MG/KG), INDUCTION WEEK 0,2,6 WEEK THEN EVERY 8 WEEKS (WEEK 0 DOSE)
     Route: 042
     Dates: start: 20220718
  2. INFLECTRA [Suspect]
     Active Substance: INFLIXIMAB-DYYB
     Dosage: 400 MG (5MG/KG), INDUCTION WEEK 0,2,6 WEEK THEN EVERY 8 WEEKS (WEEK 2 DOSE)
     Route: 042

REACTIONS (3)
  - Dementia [Not Recovered/Not Resolved]
  - Off label use [Unknown]
  - Product dose omission issue [Unknown]

NARRATIVE: CASE EVENT DATE: 20220718
